FAERS Safety Report 23050787 (Version 1)
Quarter: 2023Q4

REPORT INFORMATION
  Report Type: Spontaneous
  Country: US (occurrence: US)
  Receive Date: 20231010
  Receipt Date: 20231010
  Transmission Date: 20240109
  Serious: No
  Sender: FDA-Public Use
  Company Number: US-BRISTOL-MYERS SQUIBB COMPANY-2023-143031

PATIENT
  Age: 68 Year
  Sex: Female

DRUGS (2)
  1. SPRYCEL [Suspect]
     Active Substance: DASATINIB
     Indication: Product used for unknown indication
     Dosage: DOSE : UNAVAILABLE;     FREQ : 1 TABLET ONCE DAILY
     Route: 048
  2. SPRYCEL [Suspect]
     Active Substance: DASATINIB
     Dosage: DOSE : UNAVAILABLE;     FREQ : 1 TABLET ONCE DAILY

REACTIONS (1)
  - Adverse event [Unknown]

NARRATIVE: CASE EVENT DATE: 20231006
